FAERS Safety Report 21482965 (Version 2)
Quarter: 2022Q4

REPORT INFORMATION
  Report Type: Spontaneous
  Country: PL (occurrence: PL)
  Receive Date: 20221020
  Receipt Date: 20221028
  Transmission Date: 20230113
  Serious: Yes (Hospitalization, Other)
  Sender: FDA-Public Use
  Company Number: PL-Adamed Pharma S.A..-2022-AER-00039

PATIENT
  Age: 64 Year
  Sex: Male
  Weight: 102 kg

DRUGS (10)
  1. FUROSEMIDE [Suspect]
     Active Substance: FUROSEMIDE
     Indication: Product used for unknown indication
     Dosage: 1 DOSAGE FORM, EVERY OTHER DAY
     Route: 065
     Dates: start: 20220628, end: 20220705
  2. AMLODIPINE\RAMIPRIL [Suspect]
     Active Substance: AMLODIPINE\RAMIPRIL
     Indication: Product used for unknown indication
     Dosage: 10 MILLIGRAM
     Route: 048
     Dates: start: 2018, end: 20220627
  3. INDAPAMIDE [Suspect]
     Active Substance: INDAPAMIDE
     Indication: Product used for unknown indication
     Dosage: 1.5 MILLIGRAM, ONCE A DAY
     Route: 065
     Dates: start: 2018, end: 20220627
  4. ALLOPURINOL [Suspect]
     Active Substance: ALLOPURINOL
     Indication: Product used for unknown indication
     Dosage: 300 MILLIGRAM, EVERY OTHER DAY
     Route: 065
     Dates: start: 20220628, end: 20220704
  5. ALLOPURINOL [Suspect]
     Active Substance: ALLOPURINOL
     Dosage: 100 MILLIGRAM, EVERY OTHER DAY
     Route: 065
     Dates: start: 20220705
  6. NEBIVOLOL [Concomitant]
     Active Substance: NEBIVOLOL
     Indication: Product used for unknown indication
     Dosage: UNK
     Route: 065
     Dates: start: 2018
  7. VITAMIN C [Concomitant]
     Active Substance: ASCORBIC ACID
     Indication: Product used for unknown indication
     Dosage: UNK
     Route: 065
     Dates: start: 2018
  8. OMEPRAZOLE [Concomitant]
     Active Substance: OMEPRAZOLE
     Indication: Product used for unknown indication
     Dosage: UNK
     Route: 065
     Dates: start: 2018, end: 20220718
  9. TEBOTELIMAB [Concomitant]
     Active Substance: TEBOTELIMAB
     Indication: Product used for unknown indication
     Dosage: 6 MILLIGRAM/KILOGRAM
     Route: 065
     Dates: start: 20220524, end: 20220524
  10. TEBOTELIMAB [Concomitant]
     Active Substance: TEBOTELIMAB
     Dosage: 6 MILLIGRAM/KILOGRAM
     Route: 065
     Dates: start: 20220614, end: 20220614

REACTIONS (1)
  - Acute kidney injury [Recovered/Resolved]
